FAERS Safety Report 17365527 (Version 1)
Quarter: 2020Q1

REPORT INFORMATION
  Report Type: Spontaneous
  Country: US (occurrence: US)
  Receive Date: 20200204
  Receipt Date: 20200204
  Transmission Date: 20200409
  Serious: No
  Sender: FDA-Public Use
  Company Number: US-EYEPOINT PHARMACEUTICALS, INC.-US-EYP-19-00160

PATIENT
  Sex: Female

DRUGS (1)
  1. YUTIQ [Suspect]
     Active Substance: FLUOCINOLONE ACETONIDE
     Indication: EYE INFLAMMATION
     Route: 065
     Dates: start: 20191125

REACTIONS (3)
  - Product dose omission [Unknown]
  - No adverse event [Unknown]
  - Product quality issue [Unknown]
